FAERS Safety Report 5057460-5 (Version None)
Quarter: 2006Q3

REPORT INFORMATION
  Report Type: 
  Country: None (occurrence: None)
  Receive Date: 20060721
  Receipt Date: 20051013
  Transmission Date: 20061208
  Serious: No
  Sender: FDA-Public Use
  Company Number: US-GLAXOSMITHKLINE-A0578147A

PATIENT
  Age: 74 Year
  Sex: Male

DRUGS (4)
  1. AVANDIA [Suspect]
     Route: 048
     Dates: start: 20050101, end: 20050101
  2. METFORMIN [Suspect]
     Route: 048
     Dates: start: 20050101, end: 20050101
  3. NO CONCURRENT MEDICATION [Concomitant]
  4. AVANDAMET [Concomitant]
     Dates: end: 20050101

REACTIONS (2)
  - ABDOMINAL PAIN UPPER [None]
  - DIARRHOEA [None]
